FAERS Safety Report 13946484 (Version 3)
Quarter: 2017Q4

REPORT INFORMATION
  Report Type: Report from Study
  Country: CO (occurrence: CO)
  Receive Date: 20170907
  Receipt Date: 20171030
  Transmission Date: 20180320
  Serious: Yes (Death, Hospitalization, Other)
  Sender: FDA-Public Use
  Company Number: CO-BAYER-2017-171046

PATIENT
  Age: 36 Year
  Sex: Male

DRUGS (2)
  1. ADEMPAS [Suspect]
     Active Substance: RIOCIGUAT
     Indication: PULMONARY HYPERTENSION
     Dosage: 1.5 MG, Q8HR
     Route: 048
  2. ADEMPAS [Suspect]
     Active Substance: RIOCIGUAT
     Indication: PULMONARY HYPERTENSION
     Dosage: 1.5 MG, Q8HR
     Route: 048
     Dates: start: 20170819, end: 20170926

REACTIONS (10)
  - Gait disturbance [Not Recovered/Not Resolved]
  - Hydrocele [Unknown]
  - Localised infection [Fatal]
  - Hypotension [Recovering/Resolving]
  - Myalgia [Not Recovered/Not Resolved]
  - Oedema peripheral [Recovering/Resolving]
  - Inflammation [Recovering/Resolving]
  - Vomiting [Unknown]
  - Dizziness [Unknown]
  - Cold sweat [Recovering/Resolving]

NARRATIVE: CASE EVENT DATE: 20170822
